FAERS Safety Report 25347615 (Version 3)
Quarter: 2025Q2

REPORT INFORMATION
  Report Type: Spontaneous
  Country: US (occurrence: US)
  Receive Date: 20250522
  Receipt Date: 20250624
  Transmission Date: 20250716
  Serious: Yes (Other)
  Sender: PFIZER
  Company Number: US-PFIZER INC-202500105855

PATIENT
  Age: 55 Year
  Sex: Female
  Weight: 84 kg

DRUGS (4)
  1. TIVDAK [Suspect]
     Active Substance: TISOTUMAB VEDOTIN-TFTV
     Route: 017
     Dates: start: 20240220, end: 202403
  2. TIVDAK [Suspect]
     Active Substance: TISOTUMAB VEDOTIN-TFTV
     Route: 017
     Dates: start: 20240321, end: 20240503
  3. TIVDAK [Suspect]
     Active Substance: TISOTUMAB VEDOTIN-TFTV
     Route: 017
     Dates: start: 20240523, end: 20240730
  4. TAXOL [Suspect]
     Active Substance: PACLITAXEL
     Indication: Disease recurrence
     Dosage: 80 MG/M2, WEEKLY
     Route: 017
     Dates: start: 20250226, end: 20250528

REACTIONS (5)
  - Metastases to central nervous system [Unknown]
  - Keratopathy [Not Recovered/Not Resolved]
  - Vision blurred [Not Recovered/Not Resolved]
  - Eye pruritus [Not Recovered/Not Resolved]
  - Photophobia [Not Recovered/Not Resolved]

NARRATIVE: CASE EVENT DATE: 20250501
